FAERS Safety Report 11550183 (Version 1)
Quarter: 2015Q3

REPORT INFORMATION
  Report Type: Spontaneous
  Country: US (occurrence: US)
  Receive Date: 20150903
  Receipt Date: 20150903
  Transmission Date: 20151125
  Serious: No
  Sender: FDA-Public Use
  Company Number: US-ELI_LILLY_AND_COMPANY-US201301002239

PATIENT
  Sex: Male

DRUGS (4)
  1. HUMALOG [Suspect]
     Active Substance: INSULIN LISPRO
     Dosage: 30 IU, QD
     Route: 065
  2. HUMALOG [Suspect]
     Active Substance: INSULIN LISPRO
     Dosage: 20 IU, QD
     Route: 065
  3. HUMALOG [Suspect]
     Active Substance: INSULIN LISPRO
     Indication: TYPE 2 DIABETES MELLITUS
     Dosage: 20 IU, QD
     Route: 065
     Dates: start: 201107
  4. HUMALOG [Suspect]
     Active Substance: INSULIN LISPRO
     Dosage: 30 IU, QD
     Route: 065
     Dates: start: 201107

REACTIONS (5)
  - Blood glucose increased [Recovered/Resolved]
  - Incorrect product storage [Unknown]
  - Drug ineffective [Recovered/Resolved]
  - Overdose [Unknown]
  - Memory impairment [Unknown]
